FAERS Safety Report 25132737 (Version 1)
Quarter: 2025Q1

REPORT INFORMATION
  Report Type: Spontaneous
  Country: RO (occurrence: RO)
  Receive Date: 20250328
  Receipt Date: 20250328
  Transmission Date: 20250409
  Serious: Yes (Hospitalization)
  Sender: GALDERMA
  Company Number: None

PATIENT

DRUGS (1)
  1. EPIDUO [Suspect]
     Active Substance: ADAPALENE\BENZOYL PEROXIDE
     Indication: Acne
     Route: 061
     Dates: start: 20250221, end: 20250303

REACTIONS (9)
  - Swelling face [Recovered/Resolved]
  - Application site irritation [Recovered/Resolved]
  - Eye swelling [Recovered/Resolved]
  - Swelling [Recovered/Resolved]
  - Mouth swelling [Recovered/Resolved]
  - Purulent discharge [Recovered/Resolved]
  - Scab [Recovered/Resolved]
  - Off label use [Recovered/Resolved]
  - Intentional overdose [Recovered/Resolved]

NARRATIVE: CASE EVENT DATE: 20250221
